FAERS Safety Report 20705638 (Version 1)
Quarter: 2022Q2

REPORT INFORMATION
  Report Type: Spontaneous
  Country: US (occurrence: None)
  Receive Date: 20220412
  Receipt Date: 20220412
  Transmission Date: 20220721
  Serious: Yes (Other)
  Sender: FDA-Public Use
  Company Number: None

PATIENT
  Age: 68 Year
  Sex: Male
  Weight: 74 kg

DRUGS (1)
  1. RUXIENCE [Suspect]
     Active Substance: RITUXIMAB-PVVR
     Indication: B-cell small lymphocytic lymphoma
     Dates: start: 20220315, end: 20220331

REACTIONS (13)
  - Nausea [None]
  - Dizziness [None]
  - Arthralgia [None]
  - Pruritus [None]
  - Night sweats [None]
  - Asthenia [None]
  - Chills [None]
  - Chills [None]
  - Fatigue [None]
  - Arthralgia [None]
  - Pain in extremity [None]
  - Arthralgia [None]
  - Infusion related reaction [None]

NARRATIVE: CASE EVENT DATE: 20220315
